FAERS Safety Report 11389473 (Version 2)
Quarter: 2015Q3

REPORT INFORMATION
  Report Type: Spontaneous
  Country: US (occurrence: US)
  Receive Date: 20150817
  Receipt Date: 20150824
  Transmission Date: 20151125
  Serious: No
  Sender: FDA-Public Use
  Company Number: CHPA2015US009487

PATIENT
  Age: 71 Year
  Sex: Male

DRUGS (2)
  1. VOLTAREN [Suspect]
     Active Substance: DICLOFENAC SODIUM
     Dosage: 2 G, TWO TO THREE TIMES A DAY
     Route: 061
  2. VOLTAREN [Suspect]
     Active Substance: DICLOFENAC SODIUM
     Indication: NEUROPATHY PERIPHERAL
     Dosage: SOME ACROSS MY 2 FINGERS, 2 TO 3 TIMES A DAY
     Route: 061

REACTIONS (7)
  - Neuropathy peripheral [Not Recovered/Not Resolved]
  - Therapeutic response unexpected [Unknown]
  - Pain [Not Recovered/Not Resolved]
  - Incorrect dose administered [Unknown]
  - Wrong technique in product usage process [Unknown]
  - Product use issue [Unknown]
  - Inappropriate schedule of drug administration [Unknown]
